FAERS Safety Report 8499404 (Version 2)
Quarter: 2012Q4

REPORT INFORMATION
  Report Type: Report from Study
  Country: JP (occurrence: JP)
  Receive Date: 20120409
  Receipt Date: 20121228
  Transmission Date: 20130627
  Serious: Yes (Hospitalization)
  Sender: FDA-Public Use
  Company Number: JP-VERTEX PHARMACEUTICALS INC.-AE-2012-004725

PATIENT
  Age: 64 Year
  Sex: Male

DRUGS (7)
  1. VX-950 (TELAPREVIR) [Suspect]
     Indication: CHRONIC HEPATITIS C
     Dosage: 2250 mg, qd
     Route: 048
     Dates: start: 20120203
  2. RIBAVIRIN [Suspect]
     Indication: CHRONIC HEPATITIS C
     Dosage: 800 mg, qd
     Route: 048
     Dates: start: 20120203, end: 20120302
  3. RIBAVIRIN [Suspect]
     Dosage: 600 mg, qd
     Route: 048
     Dates: start: 20120303
  4. PEGINTERFERON ALFA-2B [Concomitant]
     Dosage: 1.5 ?g/kg, qw
     Route: 058
     Dates: start: 20120203
  5. AMLODIPINE OD [Concomitant]
     Dosage: 10 mg, qd
     Route: 048
  6. ZYLORIC [Concomitant]
     Dosage: 100 mg, qd
     Route: 048
  7. LOXOPROFEN  SODIUM HYDRATE [Concomitant]
     Dosage: 60 mg, prn
     Route: 048
     Dates: start: 20120203

REACTIONS (2)
  - Injection site rash [Recovered/Resolved]
  - Erythema [Recovered/Resolved]
